FAERS Safety Report 9292643 (Version 3)
Quarter: 2013Q3

REPORT INFORMATION
  Report Type: Spontaneous
  Country: AU (occurrence: AU)
  Receive Date: 20130516
  Receipt Date: 20130717
  Transmission Date: 20140515
  Serious: Yes (Other)
  Sender: FDA-Public Use
  Company Number: AU-AMGEN-AUSSP2013032775

PATIENT
  Age: 64 Year
  Sex: Male

DRUGS (1)
  1. NPLATE [Suspect]
     Indication: PRODUCT USED FOR UNKNOWN INDICATION
     Dosage: 106 UG, UNK
     Dates: start: 20130306

REACTIONS (3)
  - Platelet count decreased [Recovering/Resolving]
  - Therapeutic response decreased [Unknown]
  - Malaise [Unknown]
